FAERS Safety Report 6769355-7 (Version None)
Quarter: 2010Q2

REPORT INFORMATION
  Report Type: 
  Country: None (occurrence: None)
  Receive Date: 20100615
  Receipt Date: 20100603
  Transmission Date: 20101027
  Serious: Yes (Life-Threatening)
  Sender: FDA-Public Use
  Company Number: HR-JNJFOC-20100601976

PATIENT

DRUGS (2)
  1. INFLIXIMAB [Suspect]
     Indication: DRUG USE FOR UNKNOWN INDICATION
     Route: 042
  2. INFLIXIMAB [Suspect]
     Dosage: AFTER 16 MONTHS OF INFLIXIMAB
     Route: 042

REACTIONS (1)
  - DISSEMINATED TUBERCULOSIS [None]
